FAERS Safety Report 10357946 (Version 2)
Quarter: 2014Q3

REPORT INFORMATION
  Report Type: Report from Study
  Country: BR (occurrence: BR)
  Receive Date: 20140801
  Receipt Date: 20140826
  Transmission Date: 20150326
  Serious: Yes (Other)
  Sender: FDA-Public Use
  Company Number: PHHY2014BR092896

PATIENT
  Sex: Male
  Weight: 55 kg

DRUGS (4)
  1. EXELON PATCH [Suspect]
     Active Substance: RIVASTIGMINE
     Dosage: ONE ADHESIVE (9 MG/5 CM2), EVERY OTHER DAY
     Route: 062
  2. EXELON PATCH [Suspect]
     Active Substance: RIVASTIGMINE
     Indication: DEMENTIA ALZHEIMER^S TYPE
     Dosage: UNK UKN, UNK (FORMULATION: 9 MG/5CM2)
     Route: 062
  3. SOMALGIN [Concomitant]
     Active Substance: ASPIRIN\DIHYDROXYALUMINUM AMINOACETATE ANHYDROUS\MAGNESIUM CARBONATE
     Indication: CEREBRAL ISCHAEMIA
     Dosage: 1 DF, DAILY
     Route: 048
  4. MULTI-VIT [Concomitant]
     Active Substance: VITAMINS
     Indication: VITAMIN SUPPLEMENTATION
     Dosage: 1 DF, BID
     Route: 048

REACTIONS (4)
  - Diverticulum oesophageal [Recovering/Resolving]
  - Inappropriate schedule of drug administration [Unknown]
  - Irritability [Recovering/Resolving]
  - Vomiting [Recovered/Resolved]
